FAERS Safety Report 20468134 (Version 3)
Quarter: 2022Q3

REPORT INFORMATION
  Report Type: Spontaneous
  Country: US (occurrence: US)
  Receive Date: 20220214
  Receipt Date: 20220915
  Transmission Date: 20221027
  Serious: Yes (Other)
  Sender: FDA-Public Use
  Company Number: US-JNJFOC-20210941516

PATIENT
  Age: 54 Year
  Sex: Female

DRUGS (25)
  1. ELMIRON [Suspect]
     Active Substance: PENTOSAN POLYSULFATE SODIUM
     Indication: Cystitis interstitial
     Route: 048
     Dates: start: 1997, end: 2010
  2. ELMIRON [Suspect]
     Active Substance: PENTOSAN POLYSULFATE SODIUM
     Route: 048
     Dates: start: 2012, end: 2015
  3. ELMIRON [Suspect]
     Active Substance: PENTOSAN POLYSULFATE SODIUM
     Route: 048
     Dates: start: 201401, end: 201506
  4. ELMIRON [Suspect]
     Active Substance: PENTOSAN POLYSULFATE SODIUM
     Route: 048
     Dates: start: 201507, end: 202008
  5. ATENOLOL [Concomitant]
     Active Substance: ATENOLOL
     Indication: Hypertension
     Route: 065
     Dates: start: 201305, end: 202106
  6. PHENAZOPYRIDINE HCL [Concomitant]
     Active Substance: PHENAZOPYRIDINE HYDROCHLORIDE
     Indication: Cystitis interstitial
     Route: 065
     Dates: start: 2015
  7. SIMVASTATIN [Concomitant]
     Active Substance: SIMVASTATIN
     Indication: Blood cholesterol increased
     Route: 065
     Dates: start: 201402, end: 2016
  8. SIMVASTATIN [Concomitant]
     Active Substance: SIMVASTATIN
     Route: 065
     Dates: end: 202106
  9. PEPCID [Concomitant]
     Active Substance: FAMOTIDINE
     Indication: Vomiting
     Route: 065
     Dates: start: 2012
  10. PEPCID [Concomitant]
     Active Substance: FAMOTIDINE
     Indication: Gastric disorder
  11. TOPIRAMATE [Concomitant]
     Active Substance: TOPIRAMATE
     Indication: Fibromyalgia
     Route: 065
     Dates: start: 201612
  12. NORTRIPTYLINE [Concomitant]
     Active Substance: NORTRIPTYLINE
     Indication: Gastric disorder
     Route: 065
     Dates: start: 201709
  13. NORTRIPTYLINE [Concomitant]
     Active Substance: NORTRIPTYLINE
     Indication: Vomiting
  14. MORPHINE SULFATE [Concomitant]
     Active Substance: MORPHINE SULFATE
     Indication: Back injury
     Dosage: EXTENDED RELEASE
     Route: 065
     Dates: start: 20121130
  15. RANEXA [Concomitant]
     Active Substance: RANOLAZINE
     Indication: Cardiac disorder
     Route: 065
     Dates: start: 202106
  16. PROTONIX [Concomitant]
     Active Substance: PANTOPRAZOLE SODIUM
     Indication: Gastric disorder
     Route: 065
  17. LEVOTHYROXINE [Concomitant]
     Active Substance: LEVOTHYROXINE
     Indication: Autoimmune thyroiditis
     Route: 065
     Dates: start: 201505
  18. NEURONTIN [Concomitant]
     Active Substance: GABAPENTIN
     Indication: Fibromyalgia
     Route: 065
     Dates: start: 2005, end: 2016
  19. OXYCODONE [Concomitant]
     Active Substance: OXYCODONE
     Indication: Back injury
     Dates: start: 201211, end: 201604
  20. OXYCODONE [Concomitant]
     Active Substance: OXYCODONE
     Indication: Injury
  21. AMITRIPTYLINE [Concomitant]
     Active Substance: AMITRIPTYLINE
     Indication: Vomiting
     Dates: start: 20121031, end: 201707
  22. AMITRIPTYLINE [Concomitant]
     Active Substance: AMITRIPTYLINE
     Indication: Gastric disorder
  23. PANTOPRAZOLE [Concomitant]
     Active Substance: PANTOPRAZOLE
     Indication: Gastric disorder
     Dates: start: 201304, end: 201604
  24. ONDANSETRON [Concomitant]
     Active Substance: ONDANSETRON
     Indication: Nausea
     Dates: start: 201304, end: 201707
  25. DICLOFENAC [Concomitant]
     Active Substance: DICLOFENAC
     Indication: Back pain
     Dates: start: 201402, end: 201703

REACTIONS (2)
  - Maculopathy [Recovering/Resolving]
  - Toxicity to various agents [Unknown]

NARRATIVE: CASE EVENT DATE: 20151101
